FAERS Safety Report 7577294-7 (Version None)
Quarter: 2011Q2

REPORT INFORMATION
  Report Type: 
  Country: None (occurrence: None)
  Receive Date: 20110628
  Receipt Date: 20110613
  Transmission Date: 20111010
  Serious: Yes (Other)
  Sender: FDA-Public Use
  Company Number: US-BAYER-2011-013139

PATIENT
  Sex: Female
  Weight: 104.31 kg

DRUGS (16)
  1. TRAZODONE HCL [Concomitant]
     Dosage: 50 MG, QD
  2. PROBIOTICS [Concomitant]
     Indication: PRODUCT USED FOR UNKNOWN INDICATION
     Dosage: UNK UNK, QD
     Route: 048
  3. MULTI-VITAMINS [Concomitant]
     Indication: PRODUCT USED FOR UNKNOWN INDICATION
     Route: 048
  4. STRATTERA [Concomitant]
     Dosage: 40 MG, QD
  5. LORATADINE [Concomitant]
     Dosage: 10 MG, UNK
  6. TRAMADOL HCL [Concomitant]
     Indication: ABDOMINAL PAIN
     Dosage: 50 MG, UNK
     Route: 048
     Dates: start: 20100202
  7. YAZ [Suspect]
     Dosage: UNK
     Dates: start: 20080628, end: 20100701
  8. RANITIDINE [Concomitant]
     Dosage: 150 MG, UNK
  9. STOOL SOFTENER [Concomitant]
     Indication: PRODUCT USED FOR UNKNOWN INDICATION
     Route: 048
  10. NEXIUM [Concomitant]
     Dosage: 20 MG, UNK
  11. CONCERTA [Concomitant]
     Dosage: 36 MG, UNK
  12. YAZ [Suspect]
     Indication: PRODUCT USED FOR UNKNOWN INDICATION
     Dosage: UNK
     Dates: start: 20061102, end: 20080104
  13. ASCORBIC ACID [Concomitant]
     Dosage: UNK UNK, QD
  14. SINGULAIR [Concomitant]
     Dosage: 10 MG, QD
  15. NEXIUM [Concomitant]
     Dosage: 40 MG, UNK
  16. ACTONEL [Concomitant]
     Dosage: 300 MG, UNK

REACTIONS (4)
  - CHOLECYSTITIS CHRONIC [None]
  - GALLBLADDER CHOLESTEROLOSIS [None]
  - ABDOMINAL PAIN [None]
  - GALLBLADDER DISORDER [None]
